FAERS Safety Report 24018610 (Version 1)
Quarter: 2024Q2

REPORT INFORMATION
  Report Type: Spontaneous
  Country: MX (occurrence: MX)
  Receive Date: 20240627
  Receipt Date: 20240627
  Transmission Date: 20240716
  Serious: Yes (Other)
  Sender: FDA-Public Use
  Company Number: MX-BRISTOL-MYERS SQUIBB COMPANY-2024-100187

PATIENT
  Sex: Female

DRUGS (1)
  1. REVLIMID [Suspect]
     Active Substance: LENALIDOMIDE
     Indication: Product used for unknown indication
     Dosage: DOSE : INFORMATION UNAVAILABLE;     FREQ : INFORMATION UNAVAILABLE

REACTIONS (3)
  - Malignant neoplasm of orbit [Unknown]
  - Breast cancer [Unknown]
  - Vaginal cancer [Unknown]

NARRATIVE: CASE EVENT DATE: 20240501
